FAERS Safety Report 23090509 (Version 1)
Quarter: 2023Q4

REPORT INFORMATION
  Report Type: Spontaneous
  Country: CN (occurrence: CN)
  Receive Date: 20231020
  Receipt Date: 20231020
  Transmission Date: 20240109
  Serious: Yes (Other)
  Sender: FDA-Public Use
  Company Number: CN-BAYER-2023A149432

PATIENT
  Age: 78 Year
  Sex: Female
  Weight: 45 kg

DRUGS (2)
  1. AVELOX [Suspect]
     Active Substance: MOXIFLOXACIN HYDROCHLORIDE
     Indication: Pneumonia aspiration
     Dosage: 0.4 G, QD, USED VIA FISTULA
     Route: 050
     Dates: start: 20230825, end: 20230906
  2. LEVOFLOXACIN [Suspect]
     Active Substance: LEVOFLOXACIN
     Indication: Pneumonia aspiration
     Dosage: 0.5 G, QD
     Route: 041
     Dates: start: 20230906, end: 20230907

REACTIONS (4)
  - Electrocardiogram QT prolonged [Recovered/Resolved]
  - Electrocardiogram Q wave abnormal [Not Recovered/Not Resolved]
  - QRS axis abnormal [Not Recovered/Not Resolved]
  - Off label use [None]

NARRATIVE: CASE EVENT DATE: 20230825
